FAERS Safety Report 5330631-6 (Version None)
Quarter: 2007Q2

REPORT INFORMATION
  Report Type: 
  Country: None (occurrence: None)
  Receive Date: 20070516
  Receipt Date: 20070426
  Transmission Date: 20071010
  Serious: Yes (Other)
  Sender: FDA-Public Use
  Company Number: SPV1-2007-02658

PATIENT
  Age: 12 Year
  Sex: Male

DRUGS (2)
  1. PENTASA [Suspect]
  2. ASACOL [Suspect]

REACTIONS (1)
  - PERICARDIAL EFFUSION [None]
